FAERS Safety Report 7611668-0 (Version None)
Quarter: 2011Q3

REPORT INFORMATION
  Report Type: 
  Country: None (occurrence: None)
  Receive Date: 20110715
  Receipt Date: 20110711
  Transmission Date: 20111222
  Serious: Yes (Hospitalization)
  Sender: FDA-Public Use
  Company Number: SE-CUBIST-2011S1000455

PATIENT
  Age: 71 Year
  Sex: Female

DRUGS (6)
  1. SYMBICORT [Concomitant]
     Indication: PRODUCT USED FOR UNKNOWN INDICATION
     Dosage: DOSE UNIT:U UNKNOWN
     Route: 065
  2. ALVEDON [Concomitant]
     Indication: PRODUCT USED FOR UNKNOWN INDICATION
     Dosage: DOSE UNIT:U UNKNOWN
     Route: 065
  3. CUBICIN [Suspect]
     Indication: STAPHYLOCOCCAL INFECTION
     Route: 042
     Dates: start: 20110505, end: 20110525
  4. AMILORIDE HCL AND HYDROCHLOROTHIAZIDE [Concomitant]
     Dosage: DOSE UNIT:U UNKNOWN
     Route: 065
  5. AMLODIPINE [Concomitant]
     Dosage: DOSE UNIT:U UNKNOWN
     Route: 065
  6. SINGULAIR [Concomitant]
     Dosage: DOSE UNIT:U UNKNOWN
     Route: 065

REACTIONS (4)
  - NEUTROPENIA [None]
  - C-REACTIVE PROTEIN INCREASED [None]
  - PYREXIA [None]
  - CHILLS [None]
